FAERS Safety Report 9254230 (Version 3)
Quarter: 2013Q3

REPORT INFORMATION
  Report Type: Report from Study
  Country: AU (occurrence: AU)
  Receive Date: 20130425
  Receipt Date: 20130722
  Transmission Date: 20140515
  Serious: Yes (Other)
  Sender: FDA-Public Use
  Company Number: PHHY2013AU038244

PATIENT
  Age: 79 Year
  Sex: Male

DRUGS (1)
  1. SANDOSTATIN LAR [Suspect]
     Indication: NEUROENDOCRINE CARCINOMA METASTATIC
     Dosage: 30 MG
     Route: 030

REACTIONS (3)
  - Hepatic cancer [Unknown]
  - Hepatic lesion [Unknown]
  - Malignant neoplasm progression [Unknown]
